FAERS Safety Report 12209192 (Version 1)
Quarter: 2016Q1

REPORT INFORMATION
  Report Type: Spontaneous
  Country: US (occurrence: US)
  Receive Date: 20160324
  Receipt Date: 20160324
  Transmission Date: 20160526
  Serious: Yes (Other)
  Sender: FDA-Public Use
  Company Number: US-VIIV HEALTHCARE LIMITED-US2016037786

PATIENT
  Sex: Male

DRUGS (3)
  1. EPZICOM [Concomitant]
     Active Substance: ABACAVIR SULFATE\LAMIVUDINE
  2. SELZENTRY [Suspect]
     Active Substance: MARAVIROC
     Indication: HIV INFECTION
     Dosage: 1 DF, BID
     Route: 048
     Dates: start: 2014
  3. TIVICAY [Concomitant]
     Active Substance: DOLUTEGRAVIR SODIUM

REACTIONS (8)
  - Macular degeneration [Unknown]
  - Sneezing [Recovering/Resolving]
  - Myalgia [Unknown]
  - Abnormal dreams [Not Recovered/Not Resolved]
  - Eye disorder [Unknown]
  - Eye irritation [Unknown]
  - Blood creatine phosphokinase increased [Unknown]
  - Abnormal behaviour [Unknown]
